FAERS Safety Report 14013632 (Version 1)
Quarter: 2017Q3

REPORT INFORMATION
  Report Type: Spontaneous
  Country: AU (occurrence: AU)
  Receive Date: 20170926
  Receipt Date: 20170926
  Transmission Date: 20171128
  Serious: Yes (Hospitalization, Other)
  Sender: FDA-Public Use
  Company Number: PHHY2017AU134424

PATIENT
  Sex: Female

DRUGS (2)
  1. SANDOSTATIN [Suspect]
     Active Substance: OCTREOTIDE ACETATE
     Indication: ACROMEGALY
     Dosage: UNK UNK, TID
     Route: 065
  2. SANDOSTATIN LAR DEPOT [Suspect]
     Active Substance: OCTREOTIDE ACETATE
     Indication: ACROMEGALY
     Dosage: UNK UNK, QMO
     Route: 065

REACTIONS (26)
  - Pancreatitis [Unknown]
  - Blindness [Unknown]
  - Lung neoplasm [Unknown]
  - Weight abnormal [Unknown]
  - Sleep disorder [Unknown]
  - Myalgia [Unknown]
  - Pain in extremity [Unknown]
  - Pain [Unknown]
  - Visual impairment [Unknown]
  - Injection site pain [Unknown]
  - Arthralgia [Not Recovered/Not Resolved]
  - Cerebrovascular accident [Unknown]
  - Malaise [Unknown]
  - Abdominal discomfort [Unknown]
  - Optic nerve injury [Unknown]
  - Calcinosis [Unknown]
  - Panic attack [Unknown]
  - Abdominal pain upper [Unknown]
  - Vomiting [Unknown]
  - Blood growth hormone abnormal [Unknown]
  - Disease recurrence [Unknown]
  - Gait disturbance [Unknown]
  - Hypothyroidism [Unknown]
  - Acromegaly [Unknown]
  - Contusion [Unknown]
  - Nausea [Unknown]
